FAERS Safety Report 20890070 (Version 1)
Quarter: 2022Q2

REPORT INFORMATION
  Report Type: Other
  Country: FR (occurrence: FR)
  Receive Date: 20220530
  Receipt Date: 20220530
  Transmission Date: 20220720
  Serious: Yes (Hospitalization, Other)
  Sender: FDA-Public Use
  Company Number: FR-AFSSAPS-RN20161244

PATIENT

DRUGS (19)
  1. MIRTAZAPINE [Suspect]
     Active Substance: MIRTAZAPINE
     Indication: Depression
     Dosage: (INTERVAL :1 DAYS)
     Route: 048
  2. SERTRALINE [Suspect]
     Active Substance: SERTRALINE HYDROCHLORIDE
     Indication: Depression
     Dosage: 25 MILLIGRAM, QD
     Route: 048
  3. RAMIPRIL [Suspect]
     Active Substance: RAMIPRIL
     Indication: Product used for unknown indication
     Dosage: (INTERVAL :1 DAYS)
     Route: 048
  4. ALPRAZOLAM [Suspect]
     Active Substance: ALPRAZOLAM
     Indication: Anxiety
     Dosage: (INTERVAL :1 DAYS)
     Route: 048
  5. PANTOPRAZOLE [Suspect]
     Active Substance: PANTOPRAZOLE
     Indication: Gastrooesophageal reflux disease
     Dosage: (INTERVAL :1 DAYS)
     Route: 065
  6. FOLIC ACID [Suspect]
     Active Substance: FOLIC ACID
     Indication: Folate deficiency
     Dosage: 10 MILLIGRAM,2 TABLETS OF 5 MG IN ONE DOSE,(INTERVAL :1 WEEKS)
     Route: 048
  7. SULFADIAZINE [Suspect]
     Active Substance: SULFADIAZINE
     Indication: Product used for unknown indication
     Dosage: 1000 MILLIGRAM,500 MG TABLET,(INTERVAL :1 DAYS)
     Route: 048
  8. BISOPROLOL [Suspect]
     Active Substance: BISOPROLOL
     Indication: Cardiac failure
     Dosage: 1.25 MG FILM-COATED TABLETS,(INTERVAL :1 DAYS)
     Route: 048
  9. OXYCONTIN [Suspect]
     Active Substance: OXYCODONE HYDROCHLORIDE
     Indication: Pain
     Dosage: 2 DOSAGE FORM,LP 15 MG PROLONGED RELEASE FILM-COATED TABLET,(INTERVAL :1 DAYS)
     Route: 048
  10. PYRIMETHAMINE\SULFADOXINE [Suspect]
     Active Substance: PYRIMETHAMINE\SULFADOXINE
     Indication: Product used for unknown indication
     Dosage: 50 MILLIGRAM,50 MG TABLET,(INTERVAL :1 DAYS)
     Route: 048
     Dates: end: 20160705
  11. RISPERDAL [Suspect]
     Active Substance: RISPERIDONE
     Indication: Product used for unknown indication
     Dosage: .25 MILLIGRAM,(INTERVAL :1 DAYS)
     Route: 048
     Dates: end: 20160705
  12. OXYCODONE HYDROCHLORIDE [Suspect]
     Active Substance: OXYCODONE HYDROCHLORIDE
     Indication: Pain
     Dosage: 5 MILLIGRAM,5 MG CAPSULE,(INTERVAL :1 DAYS)
     Route: 048
  13. ABATACEPT [Suspect]
     Active Substance: ABATACEPT
     Dosage: 500 MILLIGRAM,250 MG POWDER FOR CONCENTRATE FOR SOLUTION FOR INFUSION,(INTERVAL :4 WEEKS)
     Route: 042
     Dates: start: 2014
  14. CALCIUM PHOSPHATE, DIBASIC, ANHYDROUS\MAGNESIUM GLYCEROPHOSPHATE\PHOSP [Suspect]
     Active Substance: CALCIUM PHOSPHATE, DIBASIC, ANHYDROUS\MAGNESIUM GLYCEROPHOSPHATE\PHOSPHORIC ACID\SODIUM PHOSPHATE, D
     Dosage: 100 MILLIGRAM,(INTERVAL :1 DAYS)
     Route: 048
     Dates: end: 20160705
  15. PREDNISONE [Suspect]
     Active Substance: PREDNISONE
     Indication: Product used for unknown indication
     Dosage: 9 MILLIGRAM,(INTERVAL :1 DAYS)
     Route: 048
  16. KARDEGIC [Suspect]
     Active Substance: ASPIRIN DL-LYSINE
     Indication: Product used for unknown indication
     Dosage: 75 MILLIGRAM,75 MG POWDER FOR ORAL SOLUTION IN SACHET-DOSE,(INTERVAL :1 DAYS)
     Route: 048
  17. LYRICA [Suspect]
     Active Substance: PREGABALIN
     Indication: Anxiety
     Dosage: 150 MILLIGRAM,75 MG CAPSULE,(INTERVAL :1 DAYS)
     Route: 048
     Dates: end: 20160705
  18. LYRICA [Suspect]
     Active Substance: PREGABALIN
     Indication: Pain
  19. NOVATREX (METHOTREXATE) [Suspect]
     Active Substance: METHOTREXATE SODIUM
     Indication: Rheumatoid arthritis
     Dosage: 10 MILLIGRAM,2.5 MG TABLET,(INTERVAL :1 WEEKS)
     Route: 048
     Dates: end: 20160705

REACTIONS (2)
  - Pancytopenia [Recovered/Resolved]
  - Bone marrow failure [Recovered/Resolved]

NARRATIVE: CASE EVENT DATE: 20160701
